FAERS Safety Report 5765145-2 (Version None)
Quarter: 2008Q2

REPORT INFORMATION
  Report Type: 
  Country: None (occurrence: None)
  Receive Date: 20080611
  Receipt Date: 20080602
  Transmission Date: 20081010
  Serious: Yes (Other)
  Sender: FDA-Public Use
  Company Number: US-TEVA-172340USA

PATIENT
  Age: 51 Year
  Sex: Female

DRUGS (2)
  1. LEFLUNOMIDE,TABLETS 10 MG [Suspect]
     Indication: POLYOMAVIRUS-ASSOCIATED NEPHROPATHY
  2. TACROLIMUS [Suspect]

REACTIONS (1)
  - THROMBOTIC MICROANGIOPATHY [None]
